FAERS Safety Report 6619663-5 (Version None)
Quarter: 2010Q1

REPORT INFORMATION
  Report Type: 
  Country: None (occurrence: None)
  Receive Date: 20100303
  Receipt Date: 20100216
  Transmission Date: 20100710
  Serious: Yes (Death)
  Sender: FDA-Public Use
  Company Number: 2010020083

PATIENT
  Age: 40 Year
  Sex: Female

DRUGS (7)
  1. CARISOPRODOL [Suspect]
     Dosage: ORAL
     Route: 048
  2. OXYCODONE HCL [Suspect]
     Dosage: ORAL
     Route: 048
  3. DIAZEPAM [Suspect]
     Dosage: ORAL
     Route: 048
  4. PROMETHAZINE [Suspect]
     Dosage: ORAL
     Route: 048
  5. DIPHENHYDRAMINE HYDROCHLORIDE [Suspect]
     Dosage: ORAL
     Route: 048
  6. DOCUSATE [Suspect]
     Dosage: ORAL
     Route: 048
  7. GABITRIL [Suspect]
     Dosage: ORAL
     Route: 048

REACTIONS (2)
  - CARDIAC ARREST [None]
  - RESPIRATORY ARREST [None]
